FAERS Safety Report 11923798 (Version 2)
Quarter: 2016Q1

REPORT INFORMATION
  Report Type: Spontaneous
  Country: US (occurrence: US)
  Receive Date: 20160118
  Receipt Date: 20160118
  Transmission Date: 20160526
  Serious: Yes (Other)
  Sender: FDA-Public Use
  Company Number: CHPA2016US000679

PATIENT
  Age: 73 Year
  Sex: Female

DRUGS (1)
  1. VOLTAREN [Suspect]
     Active Substance: DICLOFENAC SODIUM
     Indication: PROCEDURAL PAIN
     Dosage: JUST SQUEEZE THE GEL OUT ON MY HAND
     Route: 061
     Dates: start: 2014

REACTIONS (3)
  - Wrong technique in product usage process [Unknown]
  - Fibromyalgia [Not Recovered/Not Resolved]
  - Product use issue [Unknown]

NARRATIVE: CASE EVENT DATE: 2014
